FAERS Safety Report 6708644-9 (Version None)
Quarter: 2010Q2

REPORT INFORMATION
  Report Type: 
  Country: None (occurrence: None)
  Receive Date: 20100503
  Receipt Date: 20100430
  Transmission Date: 20101027
  Serious: Yes (Hospitalization)
  Sender: FDA-Public Use
  Company Number: AU-ROCHE-660832

PATIENT
  Sex: Female
  Weight: 83.2 kg

DRUGS (5)
  1. TOCILIZUMAB [Suspect]
     Indication: RHEUMATOID ARTHRITIS
     Route: 042
     Dates: start: 20070813
  2. TOCILIZUMAB [Suspect]
     Route: 042
     Dates: start: 20090518, end: 20091015
  3. TOCILIZUMAB [Suspect]
     Dosage: THE PATIENT WAS PREVIOUSLY ENROLLED IN WA17824
     Route: 042
     Dates: start: 20060914
  4. PERINDOPRIL ARGININE [Concomitant]
     Dates: start: 20071018
  5. ESCITALOPRAM OXALATE [Concomitant]
     Dates: start: 20081115

REACTIONS (3)
  - METASTASES TO ADRENALS [None]
  - PLEURAL EFFUSION [None]
  - SMALL CELL LUNG CANCER STAGE UNSPECIFIED [None]
